FAERS Safety Report 11349834 (Version 1)
Quarter: 2015Q3

REPORT INFORMATION
  Report Type: Spontaneous
  Country: US (occurrence: None)
  Receive Date: 20150806
  Receipt Date: 20150806
  Transmission Date: 20151125
  Serious: Yes (Life-Threatening, Hospitalization)
  Sender: FDA-Public Use
  Company Number: None

PATIENT
  Age: 53 Year
  Sex: Female
  Weight: 62.6 kg

DRUGS (10)
  1. LEVOTHYROXINE. [Concomitant]
     Active Substance: LEVOTHYROXINE
  2. SIMAVASTATIN [Concomitant]
  3. METFORMIN [Concomitant]
     Active Substance: METFORMIN HYDROCHLORIDE
  4. CALCIUM [Concomitant]
     Active Substance: CALCIUM
  5. INVOKANA [Suspect]
     Active Substance: CANAGLIFLOZIN
     Indication: TYPE 2 DIABETES MELLITUS
     Route: 048
     Dates: start: 20141023, end: 20150102
  6. MULTI VITAMIN [Concomitant]
     Active Substance: VITAMINS
  7. LISINOPRIL. [Concomitant]
     Active Substance: LISINOPRIL
  8. NOVOLOG [Concomitant]
     Active Substance: INSULIN ASPART
  9. CLIPIZIDE [Concomitant]
  10. NASACORT [Concomitant]
     Active Substance: TRIAMCINOLONE ACETONIDE

REACTIONS (16)
  - Headache [None]
  - Anaemia [None]
  - Acute kidney injury [None]
  - Dehydration [None]
  - Malaise [None]
  - Nausea [None]
  - Lethargy [None]
  - Blood glucose increased [None]
  - Metabolic disorder [None]
  - Vomiting [None]
  - Ketoacidosis [None]
  - Blood triglycerides increased [None]
  - Chest pain [None]
  - Hypertension [None]
  - Blood cholesterol increased [None]
  - White blood cell count increased [None]

NARRATIVE: CASE EVENT DATE: 20150102
